FAERS Safety Report 24228825 (Version 1)
Quarter: 2024Q3

REPORT INFORMATION
  Report Type: Spontaneous
  Country: IT (occurrence: IT)
  Receive Date: 20240820
  Receipt Date: 20240820
  Transmission Date: 20241017
  Serious: Yes (Death)
  Sender: MYLAN
  Company Number: IT-LIPOMED-20240106

PATIENT
  Age: 61 Year
  Sex: Male

DRUGS (6)
  1. DOXORUBICIN [Suspect]
     Active Substance: DOXORUBICIN
     Indication: Hodgkin^s disease
     Dosage: 35 MILLIGRAM/SQ. METER, CYCLE (DURING CYCLE 1 TO 4 ON DD 1 AND 11)
     Route: 065
  2. DOXORUBICIN [Suspect]
     Active Substance: DOXORUBICIN
     Dosage: 25 MILLIGRAM/SQ. METER, CYCLE (DURING CYCLE 5 TO 6 ON DD 1 AND 11)
     Route: 065
  3. BLEOMYCIN [Suspect]
     Active Substance: BLEOMYCIN SULFATE
     Indication: Hodgkin^s disease
     Dosage: 10 MILLIGRAM/SQ. METER, CYCLE (DURING 6 CYCLES ON DD 1 AND 11)
     Route: 065
  4. VINBLASTINE [Suspect]
     Active Substance: VINBLASTINE
     Indication: Hodgkin^s disease
     Dosage: 6 MILLIGRAM/SQ. METER, CYCLE (DURING 6 CYCLES ON DD 1 AND 11)
     Route: 065
  5. DACARBAZINE [Suspect]
     Active Substance: DACARBAZINE
     Indication: Hodgkin^s disease
     Dosage: 375 MILLIGRAM/SQ. METER, CYCLE (DURING 6 CYCLES ON DD 1 AND 11)
     Route: 065
  6. LENOGRASTIM [Concomitant]
     Active Substance: LENOGRASTIM
     Indication: Colony stimulating factor therapy
     Dosage: ON DD 6 TO 8 AND 17 TO 19 IN CYCLES 1 TO 6
     Route: 065

REACTIONS (1)
  - Adenocarcinoma pancreas [Fatal]
